FAERS Safety Report 8118259-6 (Version None)
Quarter: 2012Q1

REPORT INFORMATION
  Report Type: 
  Country: None (occurrence: None)
  Receive Date: 20120207
  Receipt Date: 20120126
  Transmission Date: 20120608
  Serious: Yes (Hospitalization)
  Sender: FDA-Public Use
  Company Number: AT-PFIZER INC-2012007969

PATIENT
  Sex: Male
  Weight: 55 kg

DRUGS (3)
  1. XALKORI [Suspect]
     Indication: LUNG ADENOCARCINOMA
     Dosage: 250 MG, 2X/DAY
     Dates: start: 20111214, end: 20120111
  2. PANTOPRAZOLE SODIUM [Concomitant]
     Indication: PROPHYLAXIS AGAINST GASTROINTESTINAL ULCER
     Dosage: 20 MG, UNK
  3. HYDROMORPHONE HCL [Concomitant]
     Indication: PAIN
     Dosage: 36 MG, UNK

REACTIONS (8)
  - LIVER FUNCTION TEST ABNORMAL [None]
  - NAUSEA [None]
  - NEUROLOGICAL SYMPTOM [None]
  - HAEMATEMESIS [None]
  - ABDOMINAL PAIN [None]
  - VOMITING [None]
  - ASCITES [None]
  - VIITH NERVE PARALYSIS [None]
